FAERS Safety Report 11280069 (Version 1)
Quarter: 2015Q3

REPORT INFORMATION
  Report Type: Spontaneous
  Country: PE (occurrence: PE)
  Receive Date: 20150717
  Receipt Date: 20150717
  Transmission Date: 20151125
  Serious: Yes (Hospitalization, Other)
  Sender: FDA-Public Use
  Company Number: PE-009507513-1507PER008020

PATIENT
  Age: 82 Year
  Sex: Male

DRUGS (1)
  1. JANUMET [Suspect]
     Active Substance: METFORMIN HYDROCHLORIDE\SITAGLIPTIN PHOSPHATE
     Dosage: 50 MG/1000 MG, QD
     Route: 048
     Dates: start: 20140916

REACTIONS (1)
  - Nasal cavity cancer [Unknown]

NARRATIVE: CASE EVENT DATE: 201505
